FAERS Safety Report 4800079-9 (Version None)
Quarter: 2005Q4

REPORT INFORMATION
  Report Type: 
  Country: None (occurrence: None)
  Receive Date: 20051012
  Receipt Date: 20051012
  Transmission Date: 20060501
  Serious: Yes (Other)
  Sender: FDA-Public Use
  Company Number: None

PATIENT
  Sex: Female

DRUGS (1)
  1. ORTHO TRI-CYCLEN [Suspect]
     Dosage: 1 PO QD # 28 X 12 REFILLS
     Route: 048
     Dates: start: 20051001, end: 20061001

REACTIONS (2)
  - MENSTRUATION IRREGULAR [None]
  - METRORRHAGIA [None]
